FAERS Safety Report 5623322-5 (Version None)
Quarter: 2008Q1

REPORT INFORMATION
  Report Type: 
  Country: None (occurrence: None)
  Receive Date: 20080207
  Receipt Date: 20080107
  Transmission Date: 20080703
  Serious: Yes (Death, Hospitalization)
  Sender: FDA-Public Use
  Company Number: PAR_01902_2008

PATIENT
  Age: 43 Year
  Sex: Male

DRUGS (2)
  1. VALPROIC ACID [Suspect]
     Indication: DRUG USE FOR UNKNOWN INDICATION
     Dosage: (DF ORAL)
     Route: 048
  2. CHLORPROMAZINE [Concomitant]

REACTIONS (13)
  - ABNORMAL BEHAVIOUR [None]
  - AMMONIA INCREASED [None]
  - COMA [None]
  - COMPLETED SUICIDE [None]
  - DRUG TOXICITY [None]
  - DYSARTHRIA [None]
  - GASTROINTESTINAL SOUNDS ABNORMAL [None]
  - HYPERNATRAEMIA [None]
  - HYPOCALCAEMIA [None]
  - HYPOTENSION [None]
  - MULTI-ORGAN FAILURE [None]
  - POISONING [None]
  - RESPIRATORY DEPRESSION [None]
